FAERS Safety Report 5287227-4 (Version None)
Quarter: 2007Q1

REPORT INFORMATION
  Report Type: 
  Country: None (occurrence: None)
  Receive Date: 20070116
  Receipt Date: 20061011
  Transmission Date: 20070707
  Serious: No
  Sender: FDA-Public Use
  Company Number: 2006SP003622

PATIENT
  Age: 84 Year
  Sex: Male
  Weight: 74.3899 kg

DRUGS (4)
  1. LUNESTA [Suspect]
     Indication: INSOMNIA
     Dosage: 2 MG;HS; ORAL
     Route: 048
     Dates: start: 20061002, end: 20061008
  2. TYLENOL [Concomitant]
  3. PREDNISONE TAB [Concomitant]
  4. VITAMIN CAP [Concomitant]

REACTIONS (1)
  - INSOMNIA [None]
